FAERS Safety Report 9158091 (Version 1)
Quarter: 2013Q1

REPORT INFORMATION
  Report Type: Spontaneous
  Country: MX (occurrence: MX)
  Receive Date: 20130312
  Receipt Date: 20130312
  Transmission Date: 20140127
  Serious: Yes (Other)
  Sender: FDA-Public Use
  Company Number: MX-GLAXOSMITHKLINE-A1015198A

PATIENT
  Sex: Female

DRUGS (3)
  1. AROPAX [Suspect]
     Indication: ANXIETY
     Dosage: 1TAB PER DAY
     Route: 048
     Dates: start: 201106
  2. TEGRETOL [Concomitant]
     Indication: EPILEPSY
     Dosage: 600MG PER DAY
     Route: 048
     Dates: start: 200802
  3. VENLAFAXINE [Concomitant]
     Indication: DEPRESSION
     Dosage: 1TAB UNKNOWN
     Route: 048

REACTIONS (5)
  - Dizziness [Not Recovered/Not Resolved]
  - Chills [Not Recovered/Not Resolved]
  - Decreased activity [Not Recovered/Not Resolved]
  - Derealisation [Not Recovered/Not Resolved]
  - Treatment noncompliance [Not Recovered/Not Resolved]
